FAERS Safety Report 9822786 (Version 1)
Quarter: 2014Q1

REPORT INFORMATION
  Report Type: Spontaneous
  Country: US (occurrence: US)
  Receive Date: 20140116
  Receipt Date: 20140116
  Transmission Date: 20141002
  Serious: No
  Sender: FDA-Public Use
  Company Number: US-ALLERGAN-1304633US

PATIENT
  Sex: Male

DRUGS (1)
  1. PRED FORTE [Suspect]
     Indication: POSTOPERATIVE CARE
     Dosage: UNK
     Route: 047

REACTIONS (1)
  - Rash maculo-papular [Unknown]
